FAERS Safety Report 14805357 (Version 2)
Quarter: 2018Q2

REPORT INFORMATION
  Report Type: Spontaneous
  Country: HR (occurrence: HR)
  Receive Date: 20180425
  Receipt Date: 20180503
  Transmission Date: 20180711
  Serious: Yes (Hospitalization, Other)
  Sender: FDA-Public Use
  Company Number: HR-BAYER-2018-073166

PATIENT
  Age: 73 Year
  Sex: Male

DRUGS (9)
  1. HELEX [Concomitant]
     Active Substance: ALPRAZOLAM
     Dosage: 25 MG, PRN
  2. SELDIAR [Concomitant]
     Dosage: UNK
  3. REGLAN [Concomitant]
     Active Substance: METOCLOPRAMIDE HYDROCHLORIDE
     Dosage: 1 DF, TID
  4. XOFIGO [Suspect]
     Active Substance: RADIUM RA-223 DICHLORIDE
     Indication: HORMONE-REFRACTORY PROSTATE CANCER
     Dosage: 1 DF, Q4WK
     Dates: start: 20180111, end: 20180111
  5. DECORTIN [Concomitant]
     Active Substance: PREDNISONE
     Dosage: 5 MG, BID
  6. XOFIGO [Suspect]
     Active Substance: RADIUM RA-223 DICHLORIDE
     Indication: HORMONE-REFRACTORY PROSTATE CANCER
     Dosage: 1 DF, Q4WK
     Dates: start: 20171214, end: 20171214
  7. SEVREDOL [Concomitant]
     Active Substance: MORPHINE
     Dosage: 10 MG, PRN
  8. XOFIGO [Suspect]
     Active Substance: RADIUM RA-223 DICHLORIDE
     Indication: HORMONE-REFRACTORY PROSTATE CANCER
     Dosage: 1 DF, Q4WK
     Dates: start: 20171116, end: 20171116
  9. OMNIC [Concomitant]
     Active Substance: TAMSULOSIN HYDROCHLORIDE
     Dosage: 0.4 MG, UNK

REACTIONS (10)
  - Haematochezia [None]
  - Abdominal pain upper [None]
  - Fatigue [None]
  - Investigation [None]
  - Application site pain [None]
  - Weight decreased [None]
  - Weight decreased [None]
  - Weight decreased [None]
  - Hyperaemia [None]
  - Gastritis [None]

NARRATIVE: CASE EVENT DATE: 201711
